FAERS Safety Report 10038924 (Version 1)
Quarter: 2014Q1

REPORT INFORMATION
  Report Type: Spontaneous
  Country: US (occurrence: None)
  Receive Date: 20140306
  Receipt Date: 20140306
  Transmission Date: 20141002
  Serious: Yes (Hospitalization)
  Sender: FDA-Public Use
  Company Number: 163-21880-13052625

PATIENT
  Age: 74 Year
  Sex: Female

DRUGS (14)
  1. REVLIMID [Suspect]
     Indication: PLASMA CELL MYELOMA
     Route: 048
     Dates: start: 20090201
  2. AMITRIPTYLINE HCL (AMITRIPTYLINE HYDROCHLORIDE) [Concomitant]
  3. BISOPROLOL FUMARATE (BISOPROLOL FUMARATE) [Concomitant]
  4. DEXAMETHASONE (DEXAMETHASONE) [Concomitant]
  5. FISH OIL (FISH OIL) [Concomitant]
  6. FUROSEMIDE (FUROSEMIDE) [Concomitant]
  7. MAGNESIUM (MAGNESIUM) [Concomitant]
  8. METANX (METANX) [Concomitant]
  9. MULTIVITAMINS (MULTIVITAMINS) [Concomitant]
  10. POTASSIUM (POTASSIUM) [Concomitant]
  11. VITAMIN D (ERGOCALCIFEROL) [Concomitant]
  12. LIPOSYN (LIPOSYN) [Concomitant]
  13. LEVOTHYROXINE (LEVOTHYROXINE) [Concomitant]
  14. PROBIOTIC (BIFIDOBACTERIUM LACTIS) [Concomitant]

REACTIONS (2)
  - White blood cell count decreased [None]
  - Red blood cell count decreased [None]
